FAERS Safety Report 7495751-9 (Version None)
Quarter: 2011Q2

REPORT INFORMATION
  Report Type: 
  Country: None (occurrence: None)
  Receive Date: 20110523
  Receipt Date: 20110511
  Transmission Date: 20111010
  Serious: Yes (Hospitalization)
  Sender: FDA-Public Use
  Company Number: JP-ELI_LILLY_AND_COMPANY-JP201103004682

PATIENT
  Sex: Female
  Weight: 45.2 kg

DRUGS (15)
  1. CYMBALTA [Suspect]
     Indication: DEPRESSION
     Dosage: 20 MG, DAILY (1/D)
     Route: 048
     Dates: start: 20110301, end: 20110308
  2. WARFARIN SODIUM [Concomitant]
     Indication: PROPHYLAXIS
     Dosage: 1.5 MG, DAILY (1/D)
     Route: 048
     Dates: start: 20090714, end: 20110305
  3. PURSENNID [Concomitant]
     Dosage: 24 MG, UNK
  4. OMEPRAZOLE [Concomitant]
     Indication: PROPHYLAXIS
     Dosage: 20 MG, QD
     Route: 048
     Dates: start: 20090714
  5. LIPOVAS /00848101/ [Concomitant]
     Dosage: 5 MG, QD
     Route: 048
     Dates: start: 20090714
  6. FERROUS CITRATE [Concomitant]
     Dosage: 50 MG, UNK
  7. RENIVACE [Concomitant]
     Dosage: 2.5 MG, QD
     Route: 048
     Dates: start: 20090714
  8. NEORAL [Concomitant]
     Dosage: 25 MG, WEEKLY (1/W)
     Route: 048
     Dates: start: 20090714
  9. PREDNISOLONE [Concomitant]
     Indication: DERMATOMYOSITIS
     Dosage: 5 MG, QD
     Route: 048
     Dates: start: 20100601, end: 20110116
  10. PREDNISOLONE [Concomitant]
     Dosage: 30 MG, QD
     Route: 048
     Dates: start: 20110117
  11. ALFAROL [Concomitant]
     Dosage: 0.5 UG, UNK
  12. BERIZYM [Concomitant]
     Dosage: 3 G, UNK
  13. LOSARTAN POTASSIUM [Concomitant]
     Dosage: 50 MG, QD
     Route: 048
     Dates: start: 20090714
  14. ROZEREM [Concomitant]
     Indication: DEPRESSION
     Dosage: 8 MG, DAILY (1/D)
     Route: 048
     Dates: start: 20110207, end: 20110308
  15. MAGMITT [Concomitant]
     Dosage: 660 MG, UNK

REACTIONS (8)
  - HYPONATRAEMIA [None]
  - BRADYCARDIA [None]
  - ALTERED STATE OF CONSCIOUSNESS [None]
  - DELIRIUM [None]
  - INTERNATIONAL NORMALISED RATIO INCREASED [None]
  - BRAIN STEM ISCHAEMIA [None]
  - DRUG INTERACTION [None]
  - URINARY RETENTION [None]
